FAERS Safety Report 8331257-2 (Version None)
Quarter: 2012Q2

REPORT INFORMATION
  Report Type: 
  Country: None (occurrence: None)
  Receive Date: 20120502
  Receipt Date: 20120413
  Transmission Date: 20120825
  Serious: No
  Sender: FDA-Public Use
  Company Number: US-AMGEN-USASP2011056378

PATIENT
  Age: 83 Year
  Sex: Female
  Weight: 66.667 kg

DRUGS (2)
  1. ENBREL [Suspect]
     Indication: RHEUMATOID ARTHRITIS
     Dosage: UNK
     Dates: start: 20110201
  2. METHOTREXATE [Concomitant]

REACTIONS (1)
  - LUNG DISORDER [None]
